FAERS Safety Report 9692386 (Version 1)
Quarter: 2013Q4

REPORT INFORMATION
  Report Type: Spontaneous
  Country: US (occurrence: US)
  Receive Date: 20131118
  Receipt Date: 20131118
  Transmission Date: 20140711
  Serious: No
  Sender: FDA-Public Use
  Company Number: US-PFIZER INC-2013325355

PATIENT
  Age: 53 Year
  Sex: Female
  Weight: 90.7 kg

DRUGS (5)
  1. ADVIL [Suspect]
     Indication: PAIN
     Dosage: 400 MG, AS NEEDED
     Dates: start: 2000
  2. COMBIVENT [Concomitant]
     Indication: ASTHMA
     Dosage: UNK
  3. ADVAIR DISKUS [Concomitant]
     Indication: ASTHMA
     Dosage: UNK
  4. VICODIN [Concomitant]
     Indication: PAIN
     Dosage: UNK, AS NEEDED
  5. CLONAZEPAM [Concomitant]
     Indication: MUSCLE SPASMS
     Dosage: UNK

REACTIONS (1)
  - Drug ineffective [Unknown]
